FAERS Safety Report 8331501-1 (Version None)
Quarter: 2012Q2

REPORT INFORMATION
  Report Type: 
  Country: None (occurrence: None)
  Receive Date: 20120502
  Receipt Date: 20120418
  Transmission Date: 20120825
  Serious: No
  Sender: FDA-Public Use
  Company Number: US-AMGEN-USASP2012017601

PATIENT
  Age: 58 Year
  Sex: Male

DRUGS (2)
  1. ENBREL [Suspect]
     Indication: PSORIASIS
     Dosage: 50 MG, QWK
     Dates: start: 20110101
  2. ENBREL [Suspect]
     Indication: PSORIATIC ARTHROPATHY

REACTIONS (7)
  - NAUSEA [None]
  - DERMAL CYST [None]
  - PSORIATIC ARTHROPATHY [None]
  - FEELING ABNORMAL [None]
  - LOCALISED INFECTION [None]
  - DIARRHOEA [None]
  - PSORIASIS [None]
